FAERS Safety Report 13369139 (Version 1)
Quarter: 2017Q1

REPORT INFORMATION
  Report Type: Spontaneous
  Country: US (occurrence: US)
  Receive Date: 20170324
  Receipt Date: 20170324
  Transmission Date: 20170429
  Serious: Yes (Hospitalization)
  Sender: FDA-Public Use
  Company Number: None

PATIENT
  Age: 67 Year
  Sex: Male

DRUGS (2)
  1. ERTAPENEM [Suspect]
     Active Substance: ERTAPENEM
     Indication: BACTERIAL SEPSIS
     Route: 042
     Dates: start: 20170302, end: 20170302
  2. ERTAPENEM [Suspect]
     Active Substance: ERTAPENEM
     Indication: PATHOGEN RESISTANCE
     Route: 042
     Dates: start: 20170302, end: 20170302

REACTIONS (1)
  - Seizure [None]

NARRATIVE: CASE EVENT DATE: 20170304
